FAERS Safety Report 24064472 (Version 4)
Quarter: 2024Q3

REPORT INFORMATION
  Report Type: Spontaneous
  Country: US (occurrence: US)
  Receive Date: 20240709
  Receipt Date: 20240923
  Transmission Date: 20241017
  Serious: Yes (Hospitalization, Other)
  Sender: BAYER
  Company Number: US-BAYER-2024A095200

PATIENT
  Age: 3 Year
  Sex: Male
  Weight: 15.42 kg

DRUGS (4)
  1. KOVALTRY [Suspect]
     Active Substance: ANTIHEMOPHILIC FACTOR, HUMAN RECOMBINANT
     Indication: Factor VIII deficiency
     Dosage: 350 IU, PRN
     Route: 042
     Dates: start: 202305
  2. KOVALTRY [Suspect]
     Active Substance: ANTIHEMOPHILIC FACTOR, HUMAN RECOMBINANT
     Indication: Factor VIII deficiency
     Dosage: 500 IU, PRN / 850 UNITS
     Route: 042
     Dates: start: 202305
  3. KOVALTRY [Suspect]
     Active Substance: ANTIHEMOPHILIC FACTOR, HUMAN RECOMBINANT
     Indication: Factor VIII deficiency
     Dosage: 1 DF, PRN
     Route: 042
     Dates: start: 202406, end: 202406
  4. HEMLIBRA [Concomitant]
     Active Substance: EMICIZUMAB-KXWH
     Indication: Prophylaxis
     Dosage: UNK

REACTIONS (7)
  - Tooth abscess [None]
  - Dehydration [None]
  - Haemarthrosis [Recovered/Resolved]
  - Fall [None]
  - Haemorrhage [None]
  - Injury [None]
  - Weight decreased [None]

NARRATIVE: CASE EVENT DATE: 20240627
